FAERS Safety Report 8313738-0 (Version None)
Quarter: 2012Q2

REPORT INFORMATION
  Report Type: 
  Country: None (occurrence: None)
  Receive Date: 20120426
  Receipt Date: 20110808
  Transmission Date: 20120825
  Serious: Yes (Other)
  Sender: FDA-Public Use
  Company Number: US-TEVA-US018804

PATIENT
  Sex: Female
  Weight: 68.1 kg

DRUGS (4)
  1. LEVOXYL [Concomitant]
     Indication: HYPOTHYROIDISM
     Dosage: .125 MILLIGRAM;
     Route: 048
     Dates: start: 20040101
  2. PROZAC [Concomitant]
     Indication: DEPRESSION
     Dosage: 20 MILLIGRAM;
     Route: 048
  3. PROVIGIL [Suspect]
     Indication: NARCOLEPSY
     Dosage: 200 MILLIGRAM;
     Route: 048
     Dates: start: 20050801
  4. PROVIGIL [Suspect]
     Dosage: 400 MILLIGRAM;
     Route: 048
     Dates: end: 20060801

REACTIONS (5)
  - DRUG TOLERANCE [None]
  - POLLAKIURIA [None]
  - NAUSEA [None]
  - SUICIDAL BEHAVIOUR [None]
  - MENTAL DISORDER [None]
